FAERS Safety Report 8518978-3 (Version None)
Quarter: 2012Q3

REPORT INFORMATION
  Report Type: 
  Country: None (occurrence: None)
  Receive Date: 20120718
  Receipt Date: 20120716
  Transmission Date: 20120928
  Serious: Yes (Other)
  Sender: FDA-Public Use
  Company Number: DE-GLAXOSMITHKLINE-D0076341B

PATIENT
  Age: 28 Year
  Sex: Female
  Weight: 59 kg

DRUGS (2)
  1. FOLIC ACID [Concomitant]
     Indication: PROPHYLAXIS OF NEURAL TUBE DEFECT
     Dosage: 5MG PER DAY
     Route: 048
  2. LAMOTRIGINE [Suspect]
     Indication: EPILEPSY
     Route: 048
     Dates: end: 20110212

REACTIONS (2)
  - PREMATURE RUPTURE OF MEMBRANES [None]
  - MATERNAL EXPOSURE DURING PREGNANCY [None]
